FAERS Safety Report 7812222-8 (Version None)
Quarter: 2011Q4

REPORT INFORMATION
  Report Type: 
  Country: None (occurrence: None)
  Receive Date: 20111013
  Receipt Date: 20110422
  Transmission Date: 20120403
  Serious: Yes (Other)
  Sender: FDA-Public Use
  Company Number: US-BAYER-200934428NA

PATIENT
  Age: 64 Year
  Sex: Male
  Weight: 109.75 kg

DRUGS (14)
  1. ATENOLOL [Concomitant]
  2. PROPOFOL [Concomitant]
     Indication: PRODUCT USED FOR UNKNOWN INDICATION
     Dosage: GTT
     Dates: start: 20011012
  3. ACETYLSALICYLIC ACID SRT [Concomitant]
  4. NORVASC [Concomitant]
  5. ZOCOR [Concomitant]
     Indication: PRODUCT USED FOR UNKNOWN INDICATION
  6. CLONAZEPAM [Concomitant]
     Indication: PRODUCT USED FOR UNKNOWN INDICATION
  7. PROTAMINE [Concomitant]
     Dosage: 600 MG, UNK
     Dates: start: 20011012
  8. COZAAR [Concomitant]
  9. TRASYLOL [Suspect]
     Indication: CORONARY ARTERY BYPASS
     Dosage: 1 ML, 200 ML, 25 ML/HR
     Route: 042
     Dates: start: 20011012, end: 20011012
  10. OPTIRAY 160 [Concomitant]
     Indication: PRODUCT USED FOR UNKNOWN INDICATION
     Dosage: UNK
     Dates: start: 20011002, end: 20011002
  11. HEPARIN [Concomitant]
     Indication: PRODUCT USED FOR UNKNOWN INDICATION
     Dosage: 40000 U, UNK
     Dates: start: 20011012
  12. IMDUR [Concomitant]
  13. TRASYLOL [Suspect]
     Dosage: 1000000 U, PUMP PRIME DOSE
     Route: 042
     Dates: start: 20011012, end: 20011012
  14. CEFAZOLIN [Concomitant]
     Indication: PRODUCT USED FOR UNKNOWN INDICATION
     Dosage: 4 G, UNK
     Dates: start: 20011012

REACTIONS (10)
  - RENAL FAILURE [None]
  - UNEVALUABLE EVENT [None]
  - RENAL INJURY [None]
  - EMOTIONAL DISTRESS [None]
  - STRESS [None]
  - FEAR [None]
  - PAIN [None]
  - RENAL IMPAIRMENT [None]
  - INJURY [None]
  - ANXIETY [None]
